FAERS Safety Report 7625187-9 (Version None)
Quarter: 2011Q3

REPORT INFORMATION
  Report Type: 
  Country: None (occurrence: None)
  Receive Date: 20110721
  Receipt Date: 20110324
  Transmission Date: 20111222
  Serious: No
  Sender: FDA-Public Use
  Company Number: US-BAYER-2011-026173

PATIENT
  Sex: Female

DRUGS (2)
  1. BETASERON [Suspect]
  2. LEVEMIR [Concomitant]

REACTIONS (1)
  - INJECTION SITE URTICARIA [None]
